FAERS Safety Report 15635801 (Version 4)
Quarter: 2018Q4

REPORT INFORMATION
  Report Type: Spontaneous
  Country: US (occurrence: US)
  Receive Date: 20181120
  Receipt Date: 20181218
  Transmission Date: 20190205
  Serious: No
  Sender: FDA-Public Use
  Company Number: US-ASTRAZENECA-2018SF40187

PATIENT
  Age: 1015 Month
  Sex: Male
  Weight: 63.5 kg

DRUGS (1)
  1. SYMBICORT [Suspect]
     Active Substance: BUDESONIDE\FORMOTEROL FUMARATE DIHYDRATE
     Indication: ASTHMA
     Dosage: 160/4.5 MCG, 2 PUFFS TWICE A DAY
     Route: 055

REACTIONS (14)
  - Gait disturbance [Unknown]
  - Wheezing [Unknown]
  - Product dose omission [Unknown]
  - Wrong technique in device usage process [Unknown]
  - Memory impairment [Unknown]
  - Agitation [Unknown]
  - Malaise [Unknown]
  - Muscular weakness [Unknown]
  - Dyspnoea [Not Recovered/Not Resolved]
  - Eye disorder [Unknown]
  - Ear disorder [Unknown]
  - Disturbance in attention [Unknown]
  - Intentional device misuse [Unknown]
  - Device issue [Unknown]

NARRATIVE: CASE EVENT DATE: 201810
